FAERS Safety Report 6118827-7 (Version None)
Quarter: 2009Q1

REPORT INFORMATION
  Report Type: 
  Country: None (occurrence: None)
  Receive Date: 20090316
  Receipt Date: 20090311
  Transmission Date: 20090719
  Serious: Yes (Hospitalization)
  Sender: FDA-Public Use
  Company Number: US-BRISTOL-MYERS SQUIBB COMPANY-14524664

PATIENT

DRUGS (2)
  1. CETUXIMAB [Suspect]
     Indication: HEAD AND NECK CANCER
     Dosage: CETUXIMAB 400 MG D7 (1WEEK PRIOR RADIOSURGERY),250 MG/M2 D0 + D8 (DURING 1 AND 2 WEEK RADIOSURGERY)
     Route: 042
     Dates: start: 20080326, end: 20080326
  2. RADIATION THERAPY [Suspect]
     Indication: HEAD AND NECK CANCER
     Dosage: 1 DOSAGE FORM = 8.0 GY FRACTION FOR 5 FRACTIONS.

REACTIONS (1)
  - MENINGITIS ASEPTIC [None]
